FAERS Safety Report 21789566 (Version 10)
Quarter: 2024Q4

REPORT INFORMATION
  Report Type: Spontaneous
  Country: IN (occurrence: IN)
  Receive Date: 20221228
  Receipt Date: 20241030
  Transmission Date: 20250114
  Serious: Yes (Other)
  Sender: PFIZER
  Company Number: IN-PFIZER INC-202200445238

PATIENT
  Age: 64 Year
  Sex: Female
  Weight: 65 kg

DRUGS (20)
  1. LORLATINIB [Suspect]
     Active Substance: LORLATINIB
     Dosage: UNK
     Dates: start: 20220403
  2. LORLATINIB [Suspect]
     Active Substance: LORLATINIB
     Dosage: 50 MG, 1X/DAY
     Route: 048
     Dates: start: 20230403
  3. LORLATINIB [Suspect]
     Active Substance: LORLATINIB
     Dosage: 25 MG, 1X/DAY
     Route: 048
  4. GEMCAL [CALCITRIOL;CALCIUM CITRATE] [Concomitant]
     Dosage: 500 MG, 1X/DAY
  5. PAN [Concomitant]
     Dosage: BEFORE BREAKFAST
  6. METHYLCOBALAMIN [Concomitant]
     Active Substance: METHYLCOBALAMIN
     Dosage: 1500 UG, 1X/DAY
  7. ZOLPIDEM TARTRATE [Concomitant]
     Active Substance: ZOLPIDEM TARTRATE
     Dosage: 5 MG
  8. ZOLPIDEM TARTRATE [Concomitant]
     Active Substance: ZOLPIDEM TARTRATE
     Dosage: 6 DF, DAILY (AT NIGHT)
  9. CAMPHOR\GLYCERIN\MENTHOL\ZINC OXIDE [Concomitant]
     Active Substance: CAMPHOR\GLYCERIN\MENTHOL\ZINC OXIDE
     Dosage: UNK, 1X/DAY - TABLET
     Route: 048
  10. CAMPHOR\GLYCERIN\MENTHOL\ZINC OXIDE [Concomitant]
     Active Substance: CAMPHOR\GLYCERIN\MENTHOL\ZINC OXIDE
     Dosage: 2 DF - CAPSULE ON EMPTY STOMACH
  11. PRECAP [Concomitant]
     Dosage: 75 MG HS
     Route: 048
  12. PRECAP [Concomitant]
     Dosage: 4 DF (4 TAB), DAILY AT NIGHT
  13. LOOZ [Concomitant]
     Indication: Constipation
     Dosage: 20 ML HS
     Route: 048
  14. LOOZ [Concomitant]
     Dosage: 7 DF (20ML), AS NEEDED
  15. URSODIOL [Concomitant]
     Active Substance: URSODIOL
     Dosage: 150 MG (3 TAB), 2X/DAY
  16. URSODIOL [Concomitant]
     Active Substance: URSODIOL
     Dosage: 300 MG TWICE DAILY FOR 6 MONTHS
  17. BECOSULES [Concomitant]
     Dosage: 5 DF, 1X/DAY
  18. ALUMINUM HYDROXIDE\DIMETHICONE\MAGNESIUM HYDROXIDE [Concomitant]
     Active Substance: ALUMINUM HYDROXIDE\DIMETHICONE\MAGNESIUM HYDROXIDE
     Dosage: 8 DF (GEL), 3X/DAY
     Route: 048
  19. DULCOLAX (BISACODYL) [Concomitant]
     Active Substance: BISACODYL
     Dosage: 2 TABS WITH MILK ONCE AT BEDTIME X 10 DAYS
  20. TRIPHALA [Concomitant]
     Dosage: TRIPHALA PODWER 1 TSF TWICE DAILY X 10 DAYS

REACTIONS (7)
  - Platelet count decreased [Unknown]
  - Haemoglobin decreased [Unknown]
  - White blood cell count increased [Unknown]
  - Pleural thickening [Unknown]
  - Hypertension [Unknown]
  - Pain in extremity [Unknown]
  - Off label use [Unknown]

NARRATIVE: CASE EVENT DATE: 20240221
